FAERS Safety Report 5467383-5 (Version None)
Quarter: 2007Q3

REPORT INFORMATION
  Report Type: 
  Country: None (occurrence: None)
  Receive Date: 20070925
  Receipt Date: 20070914
  Transmission Date: 20080115
  Serious: Yes (Hospitalization, Other)
  Sender: FDA-Public Use
  Company Number: RU-PFIZER INC-2007073983

PATIENT
  Age: 32 Year
  Sex: Female

DRUGS (3)
  1. DOSTINEX [Suspect]
     Indication: HYPERPROLACTINAEMIA
     Route: 048
     Dates: start: 20060901, end: 20070401
  2. DOSTINEX [Suspect]
     Route: 048
  3. DOSTINEX [Suspect]
     Route: 048
     Dates: start: 20070101, end: 20070101

REACTIONS (7)
  - ABDOMINAL PAIN [None]
  - BLOOD PROLACTIN INCREASED [None]
  - DEPRESSION [None]
  - GASTRITIS EROSIVE [None]
  - HEPATIC FUNCTION ABNORMAL [None]
  - OVARIAN CYST [None]
  - PANCREATITIS [None]
